FAERS Safety Report 14706386 (Version 1)
Quarter: 2018Q2

REPORT INFORMATION
  Report Type: Spontaneous
  Country: FR (occurrence: FR)
  Receive Date: 20180402
  Receipt Date: 20180402
  Transmission Date: 20180711
  Serious: Yes (Other)
  Sender: FDA-Public Use
  Company Number: FR-NOVOPROD-592849

PATIENT
  Sex: Male

DRUGS (2)
  1. NOVORAPID [Suspect]
     Active Substance: INSULIN ASPART
     Dosage: 60 UI
     Route: 058
     Dates: start: 20180309
  2. NOVORAPID [Suspect]
     Active Substance: INSULIN ASPART
     Indication: PRODUCT USED FOR UNKNOWN INDICATION
     Dosage: 6 UI
     Route: 058

REACTIONS (3)
  - Medication error [Unknown]
  - Accidental overdose [Unknown]
  - Coma [Unknown]

NARRATIVE: CASE EVENT DATE: 20180309
